FAERS Safety Report 14653629 (Version 1)
Quarter: 2018Q1

REPORT INFORMATION
  Report Type: Spontaneous
  Country: US (occurrence: US)
  Receive Date: 20180319
  Receipt Date: 20180319
  Transmission Date: 20180509
  Serious: No
  Sender: FDA-Public Use
  Company Number: US-BIOGEN-2018BI00541846

PATIENT
  Sex: Female

DRUGS (1)
  1. PLEGRIDY [Suspect]
     Active Substance: PEGINTERFERON BETA-1A
     Indication: MULTIPLE SCLEROSIS
     Route: 065
     Dates: start: 20170607, end: 20180307

REACTIONS (10)
  - Fatigue [Unknown]
  - Motor dysfunction [Unknown]
  - Memory impairment [Unknown]
  - Band sensation [Unknown]
  - Nephrolithiasis [Unknown]
  - Cognitive disorder [Unknown]
  - Lung disorder [Unknown]
  - Oesophageal disorder [Unknown]
  - Gait disturbance [Unknown]
  - Bladder spasm [Unknown]
